FAERS Safety Report 8585714-4 (Version None)
Quarter: 2012Q3

REPORT INFORMATION
  Report Type: 
  Country: None (occurrence: None)
  Receive Date: 20120802
  Receipt Date: 20120802
  Transmission Date: 20120928
  Serious: Yes (Other)
  Sender: FDA-Public Use
  Company Number: None

PATIENT
  Sex: Male
  Weight: 74.3899 kg

DRUGS (4)
  1. AMLODIPINE BESYLATE [Concomitant]
  2. CIPROFLOXACIN [Suspect]
     Indication: EPIDIDYMITIS
     Dosage: 500 MG BID PO
     Route: 048
     Dates: start: 20120618, end: 20120620
  3. CIPROFLOXACIN [Suspect]
     Indication: ORCHITIS
     Dosage: 500 MG BID PO
     Route: 048
     Dates: start: 20120618, end: 20120620
  4. LOSARTAN POTASSIUM [Concomitant]

REACTIONS (3)
  - MUSCULOSKELETAL PAIN [None]
  - MUSCULAR WEAKNESS [None]
  - ARTHRALGIA [None]
